FAERS Safety Report 8355293 (Version 5)
Quarter: 2013Q2

REPORT INFORMATION
  Report Type: Spontaneous
  Country: US (occurrence: US)
  Receive Date: 20120126
  Receipt Date: 20130424
  Transmission Date: 20140414
  Serious: Yes (Hospitalization, Other)
  Sender: FDA-Public Use
  Company Number: US-US-EMD SERONO, INC.-7107847

PATIENT
  Age: 60 Year
  Sex: Female
  Weight: 73 kg

DRUGS (10)
  1. REBIF [Suspect]
     Indication: RELAPSING-REMITTING MULTIPLE SCLEROSIS
     Route: 058
     Dates: start: 200707
  2. ADDERALL [Concomitant]
     Indication: FATIGUE
     Route: 048
     Dates: start: 20110518
  3. HYDROCODONE [Concomitant]
     Indication: BACK PAIN
     Route: 048
     Dates: start: 20090205
  4. TRAZODONE [Concomitant]
     Indication: DEPRESSION
  5. ZOLPIDEM [Concomitant]
     Indication: SLEEP DISORDER
  6. ALPRAZOLAM [Concomitant]
     Indication: SLEEP DISORDER
  7. PSYLLIUM FIBER [Concomitant]
     Indication: PRODUCT USED FOR UNKNOWN INDICATION
  8. VITAMIN B12 [Concomitant]
     Indication: RED BLOOD CELL COUNT DECREASED
  9. FEOSOL [Concomitant]
     Indication: ANAEMIA
  10. FEOSOL [Concomitant]
     Indication: BLOOD IRON

REACTIONS (6)
  - Colon cancer [Recovering/Resolving]
  - Escherichia infection [Recovered/Resolved]
  - Wound abscess [Recovered/Resolved]
  - Depression [Unknown]
  - Hepatic enzyme increased [Not Recovered/Not Resolved]
  - Injection site bruising [Not Recovered/Not Resolved]
